FAERS Safety Report 6494416-X (Version None)
Quarter: 2009Q4

REPORT INFORMATION
  Report Type: 
  Country: None (occurrence: None)
  Receive Date: 20091214
  Receipt Date: 20090217
  Transmission Date: 20100525
  Serious: No
  Sender: FDA-Public Use
  Company Number: US-BRISTOL-MYERS SQUIBB COMPANY-14508790

PATIENT
  Age: 55 Year
  Sex: Male
  Weight: 99 kg

DRUGS (4)
  1. ABILIFY [Suspect]
     Indication: DEPRESSION
     Dates: start: 20090213
  2. LITHIUM [Concomitant]
  3. PROTONIX [Concomitant]
  4. RHINOCORT [Concomitant]

REACTIONS (2)
  - INSOMNIA [None]
  - PANIC ATTACK [None]
